FAERS Safety Report 4672664-9 (Version None)
Quarter: 2005Q2

REPORT INFORMATION
  Report Type: 
  Country: None (occurrence: None)
  Receive Date: 20050524
  Receipt Date: 20050303
  Transmission Date: 20051028
  Serious: Yes (Hospitalization, Disabling)
  Sender: FDA-Public Use
  Company Number: US-MERCK-0503USA00852

PATIENT
  Age: 57 Year
  Sex: Male

DRUGS (9)
  1. VIOXX [Suspect]
     Indication: MONARTHRITIS
     Route: 048
     Dates: start: 20000101, end: 20040101
  2. VIOXX [Suspect]
     Route: 048
  3. VIOXX [Suspect]
     Route: 048
     Dates: start: 19990101, end: 20020101
  4. DIOVAN [Concomitant]
     Route: 065
     Dates: start: 20000503
  5. PRAVACHOL [Concomitant]
     Route: 048
     Dates: start: 20011101
  6. NIASPAN [Concomitant]
     Route: 048
  7. LASIX [Concomitant]
     Route: 048
     Dates: start: 20020101, end: 20020101
  8. NORVASC [Concomitant]
     Route: 065
     Dates: start: 20000301, end: 20020801
  9. ASPIRIN [Concomitant]
     Route: 048
     Dates: start: 19970101

REACTIONS (7)
  - ADVERSE EVENT [None]
  - ANHEDONIA [None]
  - EMOTIONAL DISTRESS [None]
  - IMPAIRED WORK ABILITY [None]
  - INJURY [None]
  - MYOCARDIAL INFARCTION [None]
  - PAIN [None]
